FAERS Safety Report 7654328-2 (Version None)
Quarter: 2011Q3

REPORT INFORMATION
  Report Type: 
  Country: None (occurrence: None)
  Receive Date: 20110803
  Receipt Date: 20110725
  Transmission Date: 20111222
  Serious: Yes (Death, Hospitalization)
  Sender: FDA-Public Use
  Company Number: US-JNJFOC-20110608983

PATIENT
  Sex: Male
  Weight: 181.44 kg

DRUGS (23)
  1. METHOTREXATE [Concomitant]
     Route: 048
  2. KLONOPIN [Concomitant]
  3. ADVAIR DISKUS 100/50 [Concomitant]
     Dates: start: 20110322
  4. CATAPRES [Concomitant]
     Route: 048
     Dates: start: 20110322
  5. ZETIA [Concomitant]
     Route: 048
     Dates: start: 20110322
  6. HUMIRA [Concomitant]
     Route: 058
     Dates: start: 20110325
  7. PERCOCET [Concomitant]
  8. XANAX [Concomitant]
  9. STELARA [Suspect]
     Route: 058
     Dates: start: 20110517
  10. STELARA [Suspect]
     Route: 058
     Dates: start: 20110520
  11. VASOTEC [Concomitant]
     Route: 048
     Dates: start: 20110322
  12. SYNTHROID [Concomitant]
     Route: 048
     Dates: start: 20110322
  13. AMBIEN [Concomitant]
     Route: 048
     Dates: start: 20110322
  14. NOVOLOG [Concomitant]
     Route: 058
     Dates: start: 20110322
  15. STELARA [Suspect]
     Route: 058
     Dates: start: 20110517
  16. LASIX [Concomitant]
     Route: 048
     Dates: start: 20110322
  17. STELARA [Suspect]
     Indication: PSORIASIS
     Route: 058
     Dates: start: 20110520
  18. NEXIUM [Concomitant]
     Route: 048
     Dates: start: 20110322
  19. ZOCOR [Concomitant]
     Route: 048
     Dates: start: 20110322
  20. SOMA [Concomitant]
  21. CLOBETASOL PROPIONATE [Concomitant]
     Dates: start: 20110325
  22. NORVASC [Concomitant]
     Route: 048
     Dates: start: 20110322
  23. PHENERGAN HCL [Concomitant]
     Route: 048
     Dates: start: 20110322

REACTIONS (7)
  - CELLULITIS [None]
  - RASH [None]
  - SEPSIS [None]
  - PANCYTOPENIA [None]
  - INAPPROPRIATE SCHEDULE OF DRUG ADMINISTRATION [None]
  - CARDIO-RESPIRATORY ARREST [None]
  - RENAL FAILURE ACUTE [None]
